FAERS Safety Report 25843494 (Version 4)
Quarter: 2025Q4

REPORT INFORMATION
  Report Type: Spontaneous
  Country: US (occurrence: US)
  Receive Date: 20250924
  Receipt Date: 20251016
  Transmission Date: 20260118
  Serious: Yes (Other)
  Sender: SANOFI AVENTIS
  Company Number: US-SANOFI-02663456

PATIENT
  Age: 12 Year
  Sex: Male

DRUGS (1)
  1. DUPIXENT [Suspect]
     Active Substance: DUPILUMAB
     Indication: Eosinophilic oesophagitis
     Dosage: 300 MG, QW
     Dates: start: 20250831

REACTIONS (10)
  - Pneumonia [Unknown]
  - Coccidioidomycosis [Unknown]
  - Influenza like illness [Unknown]
  - Respiratory symptom [Not Recovered/Not Resolved]
  - Cough [Not Recovered/Not Resolved]
  - Oropharyngeal pain [Not Recovered/Not Resolved]
  - Nasal congestion [Not Recovered/Not Resolved]
  - Ocular hyperaemia [Not Recovered/Not Resolved]
  - Pyrexia [Not Recovered/Not Resolved]
  - Injection site reaction [Unknown]

NARRATIVE: CASE EVENT DATE: 20250101
